FAERS Safety Report 20291386 (Version 1)
Quarter: 2022Q1

REPORT INFORMATION
  Report Type: Spontaneous
  Country: FR (occurrence: FR)
  Receive Date: 20220104
  Receipt Date: 20220104
  Transmission Date: 20220423
  Serious: Yes (Hospitalization, Other)
  Sender: FDA-Public Use
  Company Number: None

PATIENT
  Age: 57 Year
  Sex: Female
  Weight: 58 kg

DRUGS (2)
  1. OPDIVO [Suspect]
     Active Substance: NIVOLUMAB
     Indication: Metastases to peritoneum
     Dosage: 184 MG, 1  CYCLICAL
     Route: 033
     Dates: start: 20211019
  2. CISPLATIN [Suspect]
     Active Substance: CISPLATIN
     Indication: Metastases to peritoneum
     Dosage: 100 MILLIGRAM PER SQUARE METRE CYCLICAL
     Route: 033
     Dates: start: 20211013

REACTIONS (2)
  - Ascites [Recovered/Resolved]
  - Intentional product use issue [Unknown]

NARRATIVE: CASE EVENT DATE: 20211019
